FAERS Safety Report 6972978-3 (Version None)
Quarter: 2010Q3

REPORT INFORMATION
  Report Type: 
  Country: None (occurrence: None)
  Receive Date: 20100909
  Receipt Date: 20100826
  Transmission Date: 20110219
  Serious: Yes (Other)
  Sender: FDA-Public Use
  Company Number: US-ELI_LILLY_AND_COMPANY-US201008008019

PATIENT
  Age: 19 Year
  Sex: Male

DRUGS (4)
  1. ZYPREXA [Suspect]
     Indication: DEPRESSION
     Dosage: 2.5 MG, EACH EVENING
  2. ZYPREXA [Suspect]
     Dosage: 5 MG, EACH EVENING
  3. KLONOPIN [Concomitant]
     Dosage: 0.5 MG, UNKNOWN
  4. KLONOPIN [Concomitant]
     Dosage: 1 MG, UNKNOWN

REACTIONS (9)
  - ANXIETY [None]
  - DRUG INEFFECTIVE [None]
  - EWING'S SARCOMA [None]
  - FOOD INTOLERANCE [None]
  - NAUSEA [None]
  - OESOPHAGITIS [None]
  - RETCHING [None]
  - STRESS [None]
  - VOMITING [None]
